FAERS Safety Report 6588777-0 (Version None)
Quarter: 2010Q1

REPORT INFORMATION
  Report Type: 
  Country: None (occurrence: None)
  Receive Date: 20100218
  Receipt Date: 20100208
  Transmission Date: 20100710
  Serious: Yes (Hospitalization)
  Sender: FDA-Public Use
  Company Number: US-WATSON-2010-01712

PATIENT
  Age: 41 Year
  Sex: Male

DRUGS (2)
  1. SERTRALINE HYDROCHLORIDE [Suspect]
     Indication: DRUG USE FOR UNKNOWN INDICATION
     Dosage: 200 MG, DAILY
     Route: 065
  2. ARIPIPRAZOLE [Suspect]
     Indication: DRUG USE FOR UNKNOWN INDICATION
     Dosage: 20 MG, DAILY

REACTIONS (1)
  - MYXOEDEMA COMA [None]
